FAERS Safety Report 14350909 (Version 2)
Quarter: 2018Q1

REPORT INFORMATION
  Report Type: Report from Study
  Country: AR (occurrence: AR)
  Receive Date: 20180104
  Receipt Date: 20180109
  Transmission Date: 20180509
  Serious: Yes (Hospitalization, Other)
  Sender: FDA-Public Use
  Company Number: AR-GLAXOSMITHKLINE-AR2017GSK201450

PATIENT
  Age: 74 Year
  Sex: Male

DRUGS (2)
  1. COSENTYX [Suspect]
     Active Substance: SECUKINUMAB
     Indication: PSORIASIS
     Dosage: 300 MG, UNK
     Route: 042
     Dates: start: 20160421
  2. DICLOFENAC [Suspect]
     Active Substance: DICLOFENAC
     Indication: PAIN
     Dosage: UNK

REACTIONS (7)
  - Haemorrhage [Recovering/Resolving]
  - Haematochezia [Recovered/Resolved]
  - Dizziness [Recovered/Resolved]
  - Gastric disorder [Unknown]
  - Fall [Recovering/Resolving]
  - Rib fracture [Recovering/Resolving]
  - Vomiting [Recovered/Resolved]

NARRATIVE: CASE EVENT DATE: 20170920
